FAERS Safety Report 9033984 (Version 1)
Quarter: 2013Q1

REPORT INFORMATION
  Report Type: Spontaneous
  Country: CA (occurrence: CA)
  Receive Date: 20130128
  Receipt Date: 20130128
  Transmission Date: 20140127
  Serious: Yes (Hospitalization, Other)
  Sender: FDA-Public Use
  Company Number: CA-AMGEN-CANSP2012064746

PATIENT
  Sex: 0

DRUGS (1)
  1. PROLIA [Suspect]
     Indication: OSTEOPOROSIS
     Dosage: 60 MG, UNK
     Dates: start: 20111014

REACTIONS (3)
  - Hospitalisation [Recovered/Resolved]
  - Loss of consciousness [Unknown]
  - Confusional state [Not Recovered/Not Resolved]
